FAERS Safety Report 5918733-4 (Version None)
Quarter: 2008Q4

REPORT INFORMATION
  Report Type: 
  Country: None (occurrence: None)
  Receive Date: 20081015
  Receipt Date: 20080708
  Transmission Date: 20090506
  Serious: No
  Sender: FDA-Public Use
  Company Number: US-ASTRAZENECA-2008UW13667

PATIENT
  Age: 34 Year
  Sex: Male
  Weight: 104.3 kg

DRUGS (5)
  1. SYMBICORT [Suspect]
     Indication: WHEEZING
     Dosage: 160/4.5 2 INHALATIONS BID
     Route: 055
     Dates: start: 20080616, end: 20080704
  2. SYMBICORT [Suspect]
     Dosage: 160/4.5 2 INHALATIONS BID
     Route: 055
     Dates: start: 20080706
  3. CLARITIN [Concomitant]
  4. HYDROCHLOROTHIAZIDE [Concomitant]
  5. CHOLESTEROL DRUG [Concomitant]

REACTIONS (2)
  - HYPERCHLORHYDRIA [None]
  - OROPHARYNGEAL PAIN [None]
